FAERS Safety Report 5915284-8 (Version None)
Quarter: 2008Q4

REPORT INFORMATION
  Report Type: 
  Country: None (occurrence: None)
  Receive Date: 20081010
  Receipt Date: 20081007
  Transmission Date: 20090506
  Serious: Yes (Other)
  Sender: FDA-Public Use
  Company Number: JP-BAYER-200811277BYL

PATIENT
  Age: 61 Year
  Sex: Female

DRUGS (6)
  1. NEXAVAR [Suspect]
     Indication: RENAL CELL CARCINOMA STAGE IV
     Dosage: TOTAL DAILY DOSE: 800 MG  UNIT DOSE: 200 MG
     Route: 048
     Dates: start: 20080502, end: 20080507
  2. NEXAVAR [Suspect]
     Dosage: TOTAL DAILY DOSE: 400 MG  UNIT DOSE: 200 MG
     Route: 048
     Dates: start: 20080530, end: 20080620
  3. NEXAVAR [Suspect]
     Dosage: TOTAL DAILY DOSE: 400 MG  UNIT DOSE: 200 MG
     Route: 048
     Dates: start: 20080621, end: 20080704
  4. NEXAVAR [Suspect]
     Dosage: TOTAL DAILY DOSE: 800 MG  UNIT DOSE: 200 MG
     Route: 048
     Dates: start: 20080705, end: 20080815
  5. CIMETIPARL [Concomitant]
     Indication: GASTRITIS
     Dosage: TOTAL DAILY DOSE: 600 MG  UNIT DOSE: 200 MG
     Route: 048
     Dates: start: 20050831
  6. MOBIC [Concomitant]
     Dosage: AS USED: 1 DF
     Route: 048
     Dates: start: 20050831

REACTIONS (5)
  - GAIT DISTURBANCE [None]
  - PAIN IN EXTREMITY [None]
  - PYREXIA [None]
  - RASH [None]
  - SKIN EXFOLIATION [None]
